FAERS Safety Report 8760851 (Version 2)
Quarter: 2012Q4

REPORT INFORMATION
  Report Type: 
  Country: JP (occurrence: JP)
  Receive Date: 20120830
  Receipt Date: 20120913
  Transmission Date: 20130627
  Serious: Yes (Other)
  Sender: FDA-Public Use
  Company Number: JP-JNJFOC-20120812276

PATIENT
  Age: 62 Year
  Sex: Male

DRUGS (1)
  1. TRAMCET [Suspect]
     Indication: BACK PAIN
     Dosage: 4 tablets per day
     Route: 048
     Dates: start: 201111, end: 20120823

REACTIONS (1)
  - Renal disorder [Unknown]
